FAERS Safety Report 10160524 (Version 2)
Quarter: 2014Q2

REPORT INFORMATION
  Report Type: Spontaneous
  Country: US (occurrence: US)
  Receive Date: 20140508
  Receipt Date: 20140526
  Transmission Date: 20141212
  Serious: No
  Sender: FDA-Public Use
  Company Number: US-JNJFOC-20140411171

PATIENT
  Sex: Male

DRUGS (2)
  1. INVEGA [Suspect]
     Indication: BIPOLAR DISORDER
     Route: 048
     Dates: end: 2014
  2. INVEGA [Suspect]
     Indication: ATTENTION DEFICIT/HYPERACTIVITY DISORDER
     Route: 048
     Dates: end: 2014

REACTIONS (2)
  - Adverse event [Unknown]
  - Off label use [Unknown]
